FAERS Safety Report 15077168 (Version 1)
Quarter: 2018Q2

REPORT INFORMATION
  Report Type: Report from Study
  Country: KR (occurrence: KR)
  Receive Date: 20180627
  Receipt Date: 20180627
  Transmission Date: 20180711
  Serious: Yes (Death)
  Sender: FDA-Public Use
  Company Number: KR-MYLANLABS-2018M1045788

PATIENT
  Age: 52 Year
  Sex: Male

DRUGS (4)
  1. MYCOPHENOLATE MOFETIL. [Suspect]
     Active Substance: MYCOPHENOLATE MOFETIL
     Indication: IMMUNOSUPPRESSANT DRUG THERAPY
     Dosage: ACCUMULATIVE DOSE WAS 1099485MG AND THE AVERAGE DOSE WAS 26.0MG/DAY
     Route: 065
  2. CYCLOSPORIN [Suspect]
     Active Substance: CYCLOSPORINE
     Indication: IMMUNOSUPPRESSANT DRUG THERAPY
     Dosage: ACCUMULATIVE DOSE WAS 1129845MG AND THE AVERAGE DOSE WAS 865.1MG/DAY
     Route: 065
  3. BASILIXIMAB [Suspect]
     Active Substance: BASILIXIMAB
     Indication: IMMUNOSUPPRESSANT DRUG THERAPY
     Dosage: FOR ONE WEEK DAILY
     Route: 042
  4. SIROLIMUS. [Suspect]
     Active Substance: SIROLIMUS
     Indication: IMMUNOSUPPRESSANT DRUG THERAPY
     Dosage: ACCUMULATIVE DOSE WAS 70MG AND THE AVERAGE DOSE WAS 3.7MG/DAY
     Route: 065

REACTIONS (3)
  - Carcinoma ex-pleomorphic adenoma [Fatal]
  - Metastases to liver [Fatal]
  - Salivary gland cancer stage III [Fatal]
